FAERS Safety Report 6237981-X (Version None)
Quarter: 2009Q2

REPORT INFORMATION
  Report Type: 
  Country: None (occurrence: None)
  Receive Date: 20090617
  Receipt Date: 20090617
  Transmission Date: 20091009
  Serious: Yes (Death)
  Sender: FDA-Public Use
  Company Number: None

PATIENT
  Sex: Male
  Weight: 30 kg

DRUGS (2)
  1. CYTARABINE [Suspect]
     Dosage: 25200 MG
  2. L-ASPARAGINASE [Suspect]
     Dosage: 12600 IU

REACTIONS (8)
  - FUNGAL INFECTION [None]
  - NECROSIS [None]
  - NEUTROPENIA [None]
  - PYREXIA [None]
  - RASH [None]
  - SINUSITIS [None]
  - SKIN DISCOLOURATION [None]
  - SWELLING FACE [None]
